FAERS Safety Report 22071135 (Version 1)
Quarter: 2023Q1

REPORT INFORMATION
  Report Type: Spontaneous
  Country: CO (occurrence: CO)
  Receive Date: 20230307
  Receipt Date: 20230307
  Transmission Date: 20230418
  Serious: Yes (Life-Threatening, Hospitalization, Other)
  Sender: FDA-Public Use
  Company Number: CO-MLMSERVICE-20200916-2483527-1

PATIENT
  Age: 32 Month
  Sex: Female

DRUGS (6)
  1. IBUPROFEN [Suspect]
     Active Substance: IBUPROFEN
     Indication: Pyrexia
     Dosage: UNK
     Route: 065
  2. IBUPROFEN [Suspect]
     Active Substance: IBUPROFEN
     Indication: Respiratory symptom
  3. IBUPROFEN [Suspect]
     Active Substance: IBUPROFEN
     Indication: Malaise
  4. ACETAMINOPHEN [Suspect]
     Active Substance: ACETAMINOPHEN
     Indication: Pyrexia
     Dosage: UNK
     Route: 065
  5. ACETAMINOPHEN [Suspect]
     Active Substance: ACETAMINOPHEN
     Indication: Malaise
  6. ACETAMINOPHEN [Suspect]
     Active Substance: ACETAMINOPHEN
     Indication: Respiratory symptom

REACTIONS (7)
  - Type IV hypersensitivity reaction [Recovering/Resolving]
  - Pancreatic enzymes increased [Recovering/Resolving]
  - Toxic skin eruption [Recovering/Resolving]
  - Vasculitis [Recovering/Resolving]
  - Stevens-Johnson syndrome [Recovering/Resolving]
  - Interstitial lung disease [Recovering/Resolving]
  - Hepatic enzyme increased [Recovering/Resolving]
